FAERS Safety Report 9962954 (Version 2)
Quarter: 2014Q3

REPORT INFORMATION
  Report Type: Spontaneous
  Country: DK (occurrence: DK)
  Receive Date: 20140305
  Receipt Date: 20140707
  Transmission Date: 20150326
  Serious: Yes (Life-Threatening, Hospitalization)
  Sender: FDA-Public Use
  Company Number: DK-PFIZER INC-2014059161

PATIENT
  Age: 39 Year
  Sex: Female

DRUGS (2)
  1. MINPROSTIN [Suspect]
     Active Substance: DINOPROSTONE
     Dosage: 3 MG, SINGLE
     Route: 067
     Dates: start: 20140218
  2. MINPROSTIN [Suspect]
     Active Substance: DINOPROSTONE
     Indication: LABOUR INDUCTION
     Dosage: 3 MG, SINGLE
     Route: 067
     Dates: start: 20140217

REACTIONS (4)
  - Uterine rupture [Recovered/Resolved with Sequelae]
  - Complication of pregnancy [Recovered/Resolved]
  - Caesarean section [Recovered/Resolved]
  - Uterine haemorrhage [Recovered/Resolved]

NARRATIVE: CASE EVENT DATE: 20140217
